FAERS Safety Report 21506241 (Version 1)
Quarter: 2022Q4

REPORT INFORMATION
  Report Type: Spontaneous
  Country: US (occurrence: US)
  Receive Date: 20221026
  Receipt Date: 20221026
  Transmission Date: 20230113
  Serious: Yes (Hospitalization, Other)
  Sender: FDA-Public Use
  Company Number: US-MLMSERVICE-20221010-3846358-1

PATIENT
  Age: 66 Year
  Sex: Female

DRUGS (4)
  1. PREDNISONE [Suspect]
     Active Substance: PREDNISONE
     Indication: Chronic obstructive pulmonary disease
     Dosage: UNK (GRADUALLY TAPERED)
     Route: 065
  2. PREDNISONE [Suspect]
     Active Substance: PREDNISONE
     Dosage: UNK, PROLONGED PREDNISONE TAPER
     Route: 065
  3. OXYGEN [Concomitant]
     Active Substance: OXYGEN
     Indication: Product used for unknown indication
     Dosage: 4 LITER
     Route: 045
  4. OXYGEN [Concomitant]
     Active Substance: OXYGEN
     Dosage: 5 LITER
     Route: 045

REACTIONS (2)
  - Strongyloidiasis [Recovered/Resolved]
  - Respiratory failure [Recovered/Resolved]
